FAERS Safety Report 6189505-3 (Version None)
Quarter: 2009Q2

REPORT INFORMATION
  Report Type: 
  Country: None (occurrence: None)
  Receive Date: 20090512
  Receipt Date: 20090512
  Transmission Date: 20091009
  Serious: Yes (Other)
  Sender: FDA-Public Use
  Company Number: None

PATIENT
  Age: 57 Year
  Sex: Female
  Weight: 61.2356 kg

DRUGS (1)
  1. ACTONEL [Suspect]
     Indication: BONE DENSITY DECREASED
     Dosage: ONE ORANGE TABLET ONCE A WEEK PO
     Route: 048
     Dates: start: 20081001, end: 20090201

REACTIONS (3)
  - FAECAL VOLUME INCREASED [None]
  - FREQUENT BOWEL MOVEMENTS [None]
  - TINNITUS [None]
